FAERS Safety Report 8174862-9 (Version None)
Quarter: 2012Q1

REPORT INFORMATION
  Report Type: 
  Country: None (occurrence: None)
  Receive Date: 20120229
  Receipt Date: 20110302
  Transmission Date: 20120608
  Serious: No
  Sender: FDA-Public Use
  Company Number: US-GLAXOSMITHKLINE-A0917256A

PATIENT
  Sex: Male

DRUGS (2)
  1. UNSPECIFIED MEDICATION [Concomitant]
  2. VALACYCLOVIR HYDROCHLORIDE [Suspect]
     Indication: HERPES VIRUS INFECTION
     Dosage: 500MGD PER DAY
     Route: 065

REACTIONS (2)
  - MALAISE [None]
  - PRODUCT SUBSTITUTION ISSUE [None]
